FAERS Safety Report 6044318-8 (Version None)
Quarter: 2009Q1

REPORT INFORMATION
  Report Type: 
  Country: None (occurrence: None)
  Receive Date: 20090115
  Receipt Date: 20090115
  Transmission Date: 20090719
  Serious: No
  Sender: FDA-Public Use
  Company Number: None

PATIENT
  Age: 69 Year
  Sex: Male
  Weight: 93.441 kg

DRUGS (1)
  1. TRIAMTERENE AND HYDROCHLOROTHIAZIDE [Suspect]
     Indication: HYPERTENSION
     Dosage: 1 PER DAY PO
     Route: 048
     Dates: start: 20030818, end: 20081106

REACTIONS (5)
  - BLOOD PRESSURE DECREASED [None]
  - EXTRASYSTOLES [None]
  - HEART RATE IRREGULAR [None]
  - PRODUCT QUALITY ISSUE [None]
  - VISION BLURRED [None]
